FAERS Safety Report 5853765-6 (Version None)
Quarter: 2008Q3

REPORT INFORMATION
  Report Type: 
  Country: None (occurrence: None)
  Receive Date: 20080822
  Receipt Date: 20080814
  Transmission Date: 20090109
  Serious: Yes (Other)
  Sender: FDA-Public Use
  Company Number: CH-ASTRAZENECA-2008PK01819

PATIENT
  Age: 20233 Day
  Sex: Female
  Weight: 75 kg

DRUGS (1)
  1. NAROPIN [Suspect]

REACTIONS (1)
  - NEUROTOXICITY [None]
